FAERS Safety Report 8839852 (Version 2)
Quarter: 2018Q2

REPORT INFORMATION
  Report Type: Spontaneous
  Country: US (occurrence: US)
  Receive Date: 20121015
  Receipt Date: 20180502
  Transmission Date: 20180711
  Serious: No
  Sender: FDA-Public Use
  Company Number: US-BRISTOL-MYERS SQUIBB COMPANY-16819237

PATIENT
  Sex: Male
  Weight: 82.54 kg

DRUGS (2)
  1. KENALOG-40 [Suspect]
     Active Substance: TRIAMCINOLONE ACETONIDE
     Indication: BACK PAIN
     Dosage: 1DF=12-14 INJ
     Route: 008
  2. KENALOG-40 [Suspect]
     Active Substance: TRIAMCINOLONE ACETONIDE
     Indication: SPINAL PAIN
     Route: 065

REACTIONS (6)
  - Muscular weakness [Unknown]
  - Extrasystoles [Unknown]
  - Vision blurred [Unknown]
  - Product use issue [Unknown]
  - Dizziness [Unknown]
  - Dyspnoea [Unknown]
